FAERS Safety Report 8305408-X (Version None)
Quarter: 2012Q2

REPORT INFORMATION
  Report Type: 
  Country: None (occurrence: None)
  Receive Date: 20120423
  Receipt Date: 20120416
  Transmission Date: 20120825
  Serious: Yes (Other)
  Sender: FDA-Public Use
  Company Number: US-BAYER-2012-037477

PATIENT

DRUGS (1)
  1. ALKA-SELTZER ORIGINAL [Suspect]
     Route: 048

REACTIONS (2)
  - HALLUCINATION [None]
  - SUICIDAL IDEATION [None]
